FAERS Safety Report 9789779 (Version 1)
Quarter: 2013Q4

REPORT INFORMATION
  Report Type: Spontaneous
  Country: GB (occurrence: GB)
  Receive Date: 20131231
  Receipt Date: 20131231
  Transmission Date: 20140711
  Serious: Yes (Other)
  Sender: FDA-Public Use
  Company Number: GB-ACCORD-020963

PATIENT
  Age: 66 Year
  Sex: Male
  Weight: 171 kg

DRUGS (8)
  1. CLOPIDOGREL [Suspect]
     Indication: PRODUCT USED FOR UNKNOWN INDICATION
     Dates: start: 20131010
  2. RAMIPRIL [Concomitant]
     Dates: start: 20130827
  3. AMLODIPINE [Concomitant]
     Dates: start: 20130827
  4. NOVOMIX [Concomitant]
     Dates: start: 20130819
  5. ATORVASTATIN [Concomitant]
     Dates: start: 20130827, end: 20131021
  6. FUROSEMIDE [Concomitant]
     Dates: start: 20130827
  7. METFORMIN [Concomitant]
     Dates: start: 20130827
  8. ASPIRIN [Concomitant]
     Dates: start: 20130827

REACTIONS (4)
  - Pruritus generalised [Recovered/Resolved]
  - Swollen tongue [Recovered/Resolved]
  - Rash erythematous [Recovered/Resolved]
  - Urticaria [Recovered/Resolved]
